FAERS Safety Report 8761827 (Version 2)
Quarter: 2012Q4

REPORT INFORMATION
  Report Type: Spontaneous
  Country: US (occurrence: None)
  Receive Date: 20120823
  Receipt Date: 20121001
  Transmission Date: 20130627
  Serious: Yes (Death, Hospitalization)
  Sender: FDA-Public Use
  Company Number: TPA2012A05542

PATIENT
  Age: 63 Year
  Sex: Male
  Weight: 109.32 kg

DRUGS (20)
  1. PIOGLITAZONE HYDROCHLORIDE [Suspect]
     Indication: MYOCARDIAL INFARCTION PROPHYLAXIS
     Route: 048
     Dates: start: 20090225, end: 20090325
  2. PIOGLITAZONE HYDROCHLORIDE [Suspect]
     Indication: CEREBROVASCULAR ACCIDENT PROPHYLAXIS
     Route: 048
     Dates: start: 20090225, end: 20090325
  3. PIOGLITAZONE HYDROCHLORIDE [Suspect]
     Indication: CARDIOVASCULAR EVENT PROPHYLAXIS
     Route: 048
     Dates: start: 20090225, end: 20090325
  4. PIOGLITAZONE HYDROCHLORIDE [Suspect]
     Indication: MYOCARDIAL INFARCTION PROPHYLAXIS
     Route: 048
     Dates: start: 20090326, end: 20090422
  5. PIOGLITAZONE HYDROCHLORIDE [Suspect]
     Indication: CEREBROVASCULAR ACCIDENT PROPHYLAXIS
     Route: 048
     Dates: start: 20090326, end: 20090422
  6. PIOGLITAZONE HYDROCHLORIDE [Suspect]
     Indication: CARDIOVASCULAR EVENT PROPHYLAXIS
     Route: 048
     Dates: start: 20090326, end: 20090422
  7. PIOGLITAZONE HYDROCHLORIDE [Suspect]
     Indication: MYOCARDIAL INFARCTION PROPHYLAXIS
     Route: 048
     Dates: start: 20090423, end: 20120511
  8. PIOGLITAZONE HYDROCHLORIDE [Suspect]
     Indication: CEREBROVASCULAR ACCIDENT PROPHYLAXIS
     Route: 048
     Dates: start: 20090423, end: 20120511
  9. PIOGLITAZONE HYDROCHLORIDE [Suspect]
     Indication: CARDIOVASCULAR EVENT PROPHYLAXIS
     Route: 048
     Dates: start: 20090423, end: 20120511
  10. LISINOPRIL (LISINOPRIL) [Concomitant]
  11. ATENOLOL (ATENOLOL) [Concomitant]
  12. LIPITOR (ATORVASTATIN CALCIUM) [Concomitant]
  13. AMLODIPINE (AMLODIPINE) [Concomitant]
  14. RANITIDINE ENTERAL (RANITIDINE) [Concomitant]
  15. DOCUSATE ENTERAL (DOCUSATE) [Concomitant]
  16. CEFTRIAXONE INJECTION (CEFTRIAXONE SODIUM) [Concomitant]
  17. CLOPIDOGREL ENTERAL (CLOPIDOGREL) [Concomitant]
  18. ASPIRIN ENTERAL (ACETYLSALICYLIC ACID) [Concomitant]
  19. LEVETIRACETAM ENTERAL (LEVETIRACETAM) [Concomitant]
  20. HEPARIN INFUSION (HEPARIN) [Concomitant]

REACTIONS (5)
  - Cardiac arrest [None]
  - Blood pressure increased [None]
  - Cardiac failure congestive [None]
  - Myocardial infarction [None]
  - Unresponsive to stimuli [None]
